FAERS Safety Report 12082881 (Version 2)
Quarter: 2016Q1

REPORT INFORMATION
  Report Type: Other
  Country: GB (occurrence: GB)
  Receive Date: 20160217
  Receipt Date: 20160304
  Transmission Date: 20160526
  Serious: Yes (Death)
  Sender: FDA-Public Use
  Company Number: GB-TARO PHARMACEUTICALS USA.,INC-2016SUN00087

PATIENT
  Age: 76 Year
  Sex: Female
  Weight: 58 kg

DRUGS (17)
  1. ASPIRIN. [Concomitant]
     Active Substance: ASPIRIN
     Dosage: STOPPED BEFORE WARFARINISATION
     Dates: end: 201601
  2. BENDROFLUMETHIAZIDE [Concomitant]
     Active Substance: BENDROFLUMETHIAZIDE
  3. WARFARIN [Suspect]
     Active Substance: WARFARIN
     Indication: PULMONARY EMBOLISM
     Route: 048
     Dates: start: 20160112, end: 20160113
  4. ATORVASTATIN [Concomitant]
     Active Substance: ATORVASTATIN
  5. BISOPROLOL [Concomitant]
     Active Substance: BISOPROLOL
  6. LEVOTHYROXINE. [Concomitant]
     Active Substance: LEVOTHYROXINE
     Indication: HYPOTHYROIDISM
  7. VITAMIN D [Concomitant]
     Active Substance: CHOLECALCIFEROL
  8. FOSTAIR [Concomitant]
     Active Substance: BECLOMETHASONE\FORMOTEROL
  9. GABAPENTIN. [Concomitant]
     Active Substance: GABAPENTIN
  10. DALTEPARIN [Concomitant]
     Active Substance: DALTEPARIN
     Indication: PULMONARY EMBOLISM
  11. LOPERAMIDE [Concomitant]
     Active Substance: LOPERAMIDE
  12. SALBUTAMOL [Concomitant]
     Active Substance: ALBUTEROL
  13. TIOTROPIUM [Concomitant]
     Active Substance: TIOTROPIUM
  14. UNIPHYLLIN [Concomitant]
     Active Substance: THEOPHYLLINE ANHYDROUS
  15. DOSULEPIN HYDROCHLORIDE [Concomitant]
     Active Substance: DOTHIEPIN HYDROCHLORIDE
  16. RAMIPRIL. [Concomitant]
     Active Substance: RAMIPRIL
  17. CLOPIDOGREL [Concomitant]
     Active Substance: CLOPIDOGREL BISULFATE
     Dosage: STOPPED BEFORE WARFARINISATION
     Dates: end: 201601

REACTIONS (3)
  - Contusion [Unknown]
  - Skin haemorrhage [Unknown]
  - Skin necrosis [Fatal]

NARRATIVE: CASE EVENT DATE: 20160113
